FAERS Safety Report 20135508 (Version 1)
Quarter: 2021Q4

REPORT INFORMATION
  Report Type: Spontaneous
  Country: CA (occurrence: CA)
  Receive Date: 20211201
  Receipt Date: 20211201
  Transmission Date: 20220303
  Serious: Yes (Hospitalization)
  Sender: FDA-Public Use
  Company Number: CA-MYLANLABS-2021M1088727

PATIENT
  Age: 3 Year
  Sex: Male

DRUGS (1)
  1. EPINEPHRINE [Suspect]
     Active Substance: EPINEPHRINE
     Indication: Food allergy
     Dosage: AUTOINJECTOR
     Route: 065

REACTIONS (2)
  - Septic arthritis staphylococcal [Unknown]
  - Accidental exposure to product by child [Unknown]
